FAERS Safety Report 11274339 (Version 1)
Quarter: 2015Q3

REPORT INFORMATION
  Report Type: Spontaneous
  Country: US (occurrence: US)
  Receive Date: 20150715
  Receipt Date: 20150715
  Transmission Date: 20151125
  Serious: Yes (Other)
  Sender: FDA-Public Use
  Company Number: US-LPDUSPRD-20150531

PATIENT
  Age: 40 Year
  Sex: Male
  Weight: 92.99 kg

DRUGS (10)
  1. TIZANIDINE. [Suspect]
     Active Substance: TIZANIDINE
     Dosage: 2 MG
     Route: 065
  2. GAS-X [Concomitant]
     Active Substance: DIMETHICONE
     Dosage: DOSE NOT PROVIDED
     Route: 065
  3. BETAMETHASONE SODIUM PHOS/BETAMETHASONE ACETATE INJ SUSP, USP (40042-048-05) 6 MG/ML [Suspect]
     Active Substance: BETAMETHASONE
     Dosage: 6 MG ONCE
     Route: 008
     Dates: start: 20150422, end: 20150422
  4. RANITIDINE [Concomitant]
     Active Substance: RANITIDINE\RANITIDINE HYDROCHLORIDE
     Dosage: DOSE NOT PROVIDED
     Route: 065
  5. MELATONIN [Concomitant]
     Active Substance: MELATONIN
     Dosage: DOSE NOT PROVIDED
     Route: 065
  6. ASPIRIN. [Concomitant]
     Active Substance: ASPIRIN
     Dosage: 325 MG
     Route: 065
  7. NORTRIPTYLINE [Concomitant]
     Active Substance: NORTRIPTYLINE
     Dosage: DOSE NOT PROVIDED
     Route: 065
  8. AMPYRA [Suspect]
     Active Substance: DALFAMPRIDINE
     Dosage: 10 MG, BID
     Route: 048
     Dates: start: 20140517
  9. GRALISE [Concomitant]
     Active Substance: GABAPENTIN
     Dosage: 600 MG
     Route: 065
  10. TECFIDERA [Concomitant]
     Active Substance: DIMETHYL FUMARATE
     Dosage: 240 MG
     Route: 065

REACTIONS (2)
  - Abnormal dreams [Unknown]
  - Seizure [Unknown]

NARRATIVE: CASE EVENT DATE: 20150422
